FAERS Safety Report 22263829 (Version 2)
Quarter: 2023Q2

REPORT INFORMATION
  Report Type: Spontaneous
  Country: IT (occurrence: IT)
  Receive Date: 20230428
  Receipt Date: 20230512
  Transmission Date: 20230721
  Serious: Yes (Hospitalization)
  Sender: FDA-Public Use
  Company Number: IT-TEVA-2023-IT-2880516

PATIENT
  Age: 16 Year
  Sex: Male

DRUGS (1)
  1. CISPLATIN [Suspect]
     Active Substance: CISPLATIN
     Indication: Osteosarcoma
     Route: 065

REACTIONS (3)
  - Nephropathy toxic [Unknown]
  - Hypomagnesaemia [Recovered/Resolved]
  - Unmasking of previously unidentified disease [Unknown]
